FAERS Safety Report 25450823 (Version 1)
Quarter: 2025Q2

REPORT INFORMATION
  Report Type: Spontaneous
  Country: US (occurrence: None)
  Receive Date: 20250618
  Receipt Date: 20250618
  Transmission Date: 20250717
  Serious: Yes (Death)
  Sender: FDA-CTU
  Company Number: None

PATIENT
  Age: 72 Year
  Sex: Female
  Weight: 63.5 kg

DRUGS (10)
  1. PREDNISONE [Suspect]
     Active Substance: PREDNISONE
     Dates: start: 20250522
  2. POLYETHYLENE GLYCOL [Suspect]
     Active Substance: POLYETHYLENE GLYCOL
  3. HYDRALAZINE [Suspect]
     Active Substance: HYDRALAZINE HYDROCHLORIDE
     Dates: start: 20250522
  4. VALPROIC ACID [Suspect]
     Active Substance: VALPROIC ACID
     Dates: start: 20250522
  5. BUTALBITAL, ACETAMINOPHEN, AND CAFFEINE [Suspect]
     Active Substance: ACETAMINOPHEN\BUTALBITAL\CAFFEINE
     Dates: start: 20250522
  6. ONDANSETRON [Suspect]
     Active Substance: ONDANSETRON
     Dates: start: 20250522
  7. ONDANSETRON [Suspect]
     Active Substance: ONDANSETRON
     Dates: start: 20250404
  8. PREGABALIN [Suspect]
     Active Substance: PREGABALIN
     Dates: start: 20221114
  9. METOCLOPRAMIDE [Suspect]
     Active Substance: METOCLOPRAMIDE
     Dates: start: 20220826
  10. CARBAMAZEPINE [Suspect]
     Active Substance: CARBAMAZEPINE
     Dates: start: 20250211

REACTIONS (1)
  - Death [None]
